FAERS Safety Report 13104132 (Version 1)
Quarter: 2017Q1

REPORT INFORMATION
  Report Type: Report from Study
  Country: US (occurrence: US)
  Receive Date: 20170111
  Receipt Date: 20170111
  Transmission Date: 20170428
  Serious: No
  Sender: FDA-Public Use
  Company Number: US-AMGEN-USASL2017003015

PATIENT
  Sex: Female

DRUGS (1)
  1. ENBREL [Suspect]
     Active Substance: ETANERCEPT
     Indication: ANKYLOSING SPONDYLITIS
     Dosage: 50 MG, QWK
     Route: 065

REACTIONS (10)
  - Injection site urticaria [Recovered/Resolved]
  - Crying [Unknown]
  - Injection site erythema [Recovered/Resolved]
  - Arthralgia [Not Recovered/Not Resolved]
  - Injection site discolouration [Recovered/Resolved]
  - Gait disturbance [Unknown]
  - Injection site haemorrhage [Unknown]
  - Panic attack [Unknown]
  - Injection site bruising [Recovered/Resolved]
  - Pain [Not Recovered/Not Resolved]
